FAERS Safety Report 5621153-3 (Version None)
Quarter: 2008Q1

REPORT INFORMATION
  Report Type: 
  Country: None (occurrence: None)
  Receive Date: 20080114
  Receipt Date: 20061206
  Transmission Date: 20080703
  Serious: Yes (Hospitalization)
  Sender: FDA-Public Use
  Company Number: A03200607199

PATIENT
  Age: 84 Year
  Sex: Female

DRUGS (7)
  1. PLAVIX [Suspect]
     Indication: CEREBROVASCULAR ACCIDENT
     Dosage: 75 MG QD - ORAL
     Route: 048
     Dates: start: 20010101, end: 20061101
  2. MIDODRINE [Concomitant]
  3. MESALAMINE [Concomitant]
  4. HYDROCHLOROTHIAZIDE [Concomitant]
  5. FELODIPINE [Concomitant]
  6. ESOMEPRAZOLE [Concomitant]
  7. VITAMINS [Concomitant]

REACTIONS (1)
  - GASTRIC HAEMORRHAGE [None]
